FAERS Safety Report 8509070-2 (Version None)
Quarter: 2012Q3

REPORT INFORMATION
  Report Type: 
  Country: None (occurrence: None)
  Receive Date: 20120713
  Receipt Date: 20120703
  Transmission Date: 20120928
  Serious: Yes (Other)
  Sender: FDA-Public Use
  Company Number: JP-PFIZER INC-2012147242

PATIENT
  Age: 58 Year
  Sex: Female

DRUGS (4)
  1. LEVOFLOXACIN [Concomitant]
     Dosage: UNK
     Route: 048
     Dates: start: 20120428
  2. NORVASC [Concomitant]
     Dosage: UNK
  3. EPL CAP. [Concomitant]
     Dosage: UNK
  4. LIPITOR [Suspect]
     Indication: HYPERLIPIDAEMIA
     Dosage: 10 MG DAILY
     Route: 048
     Dates: start: 20120206

REACTIONS (2)
  - BLOOD URINE PRESENT [None]
  - CYSTITIS [None]
